FAERS Safety Report 10233946 (Version 2)
Quarter: 2014Q2

REPORT INFORMATION
  Report Type: Spontaneous
  Country: GB (occurrence: GB)
  Receive Date: 20140612
  Receipt Date: 20140612
  Transmission Date: 20141212
  Serious: Yes (Hospitalization)
  Sender: FDA-Public Use
  Company Number: GB-ASTRAZENECA-2014SE35116

PATIENT
  Age: 65 Year
  Sex: Female

DRUGS (6)
  1. BRILIQUE [Suspect]
     Indication: ACUTE MYOCARDIAL INFARCTION
     Route: 048
     Dates: start: 20140423, end: 201405
  2. ASPIRIN [Concomitant]
  3. BISOPROLOL [Concomitant]
  4. OMEPRAZOLE [Concomitant]
  5. RAMIPRIL [Concomitant]
  6. TICAGRELOR [Concomitant]

REACTIONS (2)
  - Interstitial lung disease [Recovered/Resolved]
  - Haemoptysis [Recovered/Resolved]
